FAERS Safety Report 20219535 (Version 1)
Quarter: 2021Q4

REPORT INFORMATION
  Report Type: Spontaneous
  Country: US (occurrence: US)
  Receive Date: 20211222
  Receipt Date: 20211222
  Transmission Date: 20220303
  Serious: Yes (Hospitalization, Other)
  Sender: FDA-Public Use
  Company Number: US-SCIEGENP-2021SCLIT01005

PATIENT
  Age: 71 Year
  Sex: Female

DRUGS (1)
  1. ATORVASTATIN CALCIUM [Suspect]
     Active Substance: ATORVASTATIN CALCIUM
     Indication: Hyperlipidaemia
     Dosage: STARTED ONE WEEK PRIOR TO SYMPTOMS AND STOPPED AFTER 2 WEEKS OF SYMPTOMS
     Route: 065

REACTIONS (1)
  - Autoimmune hepatitis [Recovering/Resolving]
